FAERS Safety Report 25966224 (Version 1)
Quarter: 2025Q4

REPORT INFORMATION
  Report Type: Spontaneous
  Country: EU (occurrence: EU)
  Receive Date: 20251028
  Receipt Date: 20251028
  Transmission Date: 20260117
  Serious: Yes (Hospitalization)
  Sender: ALEXION PHARMACEUTICALS
  Company Number: None

PATIENT
  Age: 66 Year
  Sex: Female
  Weight: 48 kg

DRUGS (1)
  1. IMFINZI [Suspect]
     Active Substance: DURVALUMAB
     Indication: Small cell lung cancer
     Dosage: 50 MG/ML, PERFUSION INTRAVENOUS
     Dates: start: 20250205, end: 20250409

REACTIONS (1)
  - Cardiac dysfunction [Recovering/Resolving]

NARRATIVE: CASE EVENT DATE: 20250506
